FAERS Safety Report 6848266-2 (Version None)
Quarter: 2010Q3

REPORT INFORMATION
  Report Type: 
  Country: None (occurrence: None)
  Receive Date: 20100716
  Receipt Date: 20100705
  Transmission Date: 20110219
  Serious: Yes (Hospitalization)
  Sender: FDA-Public Use
  Company Number: CA-SANOFI-AVENTIS-2010SA039114

PATIENT
  Age: 51 Year
  Sex: Male

DRUGS (6)
  1. OXALIPLATIN [Suspect]
     Route: 041
     Dates: start: 20070306, end: 20070306
  2. OXALIPLATIN [Suspect]
     Route: 041
  3. CAPECITABINE [Suspect]
     Route: 048
     Dates: start: 20070306
  4. BEVACIZUMAB [Suspect]
     Route: 041
     Dates: start: 20070220, end: 20070220
  5. BEVACIZUMAB [Suspect]
     Route: 041
  6. ASPIRIN [Concomitant]

REACTIONS (1)
  - NECROTISING FASCIITIS [None]
